FAERS Safety Report 12258397 (Version 1)
Quarter: 2016Q2

REPORT INFORMATION
  Report Type: Spontaneous
  Country: US (occurrence: US)
  Receive Date: 20160412
  Receipt Date: 20160412
  Transmission Date: 20160815
  Serious: No
  Sender: FDA-Public Use
  Company Number: US-SA-2015SA044316

PATIENT
  Age: 78 Year
  Sex: Female

DRUGS (2)
  1. ALLEGRA [Suspect]
     Active Substance: FEXOFENADINE HYDROCHLORIDE
     Indication: PRURITUS
     Dosage: START DATE: 1 WEEK AGO
     Route: 048
     Dates: start: 2015
  2. LORATADINE. [Concomitant]
     Active Substance: LORATADINE
     Route: 065

REACTIONS (6)
  - Pruritus [Unknown]
  - Mechanical urticaria [Unknown]
  - Condition aggravated [Unknown]
  - Extra dose administered [Unknown]
  - Urticaria [Unknown]
  - Rash [Unknown]
